FAERS Safety Report 7289006-5 (Version None)
Quarter: 2011Q1

REPORT INFORMATION
  Report Type: 
  Country: None (occurrence: None)
  Receive Date: 20110211
  Receipt Date: 20110208
  Transmission Date: 20110831
  Serious: Yes (Other)
  Sender: FDA-Public Use
  Company Number: FR-EISAI INC-E2020-08534-SPO-FR

PATIENT
  Age: 80 Year
  Sex: Female

DRUGS (2)
  1. ARICEPT [Suspect]
     Route: 048
  2. ARICEPT [Suspect]
     Route: 048

REACTIONS (2)
  - DEMENTIA [None]
  - BRIEF PSYCHOTIC DISORDER WITH MARKED STRESSORS [None]
